FAERS Safety Report 16724850 (Version 2)
Quarter: 2019Q3

REPORT INFORMATION
  Report Type: Report from Study
  Country: RS (occurrence: RS)
  Receive Date: 20190821
  Receipt Date: 20190826
  Transmission Date: 20191005
  Serious: Yes (Other)
  Sender: FDA-Public Use
  Company Number: RS-009507513-1908SRB003574

PATIENT

DRUGS (3)
  1. OMBITASVIR (+) PARITAPREVIR (+) RITONAVIR [Suspect]
     Active Substance: OMBITASVIR\PARITAPREVIR\RITONAVIR
     Indication: CHRONIC HEPATITIS C
     Dosage: 12.5 MG/75 MG/ 5MG, TWO TABLETS AS A MORNING DOSE, EVERY DAY
     Route: 048
  2. DASABUVIR SODIUM [Suspect]
     Active Substance: DASABUVIR SODIUM MONOHYDRATE
     Indication: CHRONIC HEPATITIS C
     Dosage: 500 MG/DAY DIVIDED INTO TWO DOSES
     Route: 048
  3. RIBAVIRIN. [Suspect]
     Active Substance: RIBAVIRIN
     Indication: CHRONIC HEPATITIS C
     Dosage: 1000 MG/DAY OR 1200 MG/DAY (DEPENDING ON THE WEIGTH), DIVIDED INTO TWO DOSES, EVERY DAY
     Route: 048
     Dates: end: 20190712

REACTIONS (7)
  - Fatigue [Unknown]
  - Headache [Unknown]
  - Insomnia [Unknown]
  - Anaemia [Unknown]
  - Pruritus [Unknown]
  - Hyperbilirubinaemia [Not Recovered/Not Resolved]
  - Asthenia [Unknown]

NARRATIVE: CASE EVENT DATE: 2019
